FAERS Safety Report 8391352-9 (Version None)
Quarter: 2012Q2

REPORT INFORMATION
  Report Type: 
  Country: None (occurrence: None)
  Receive Date: 20120529
  Receipt Date: 20120521
  Transmission Date: 20120825
  Serious: Yes (Disabling)
  Sender: FDA-Public Use
  Company Number: US-JNJFOC-20120517239

PATIENT

DRUGS (1)
  1. LEVAQUIN [Suspect]
     Indication: ILL-DEFINED DISORDER
     Route: 065

REACTIONS (1)
  - DISABILITY [None]
